FAERS Safety Report 21756243 (Version 2)
Quarter: 2023Q2

REPORT INFORMATION
  Report Type: Spontaneous
  Country: US (occurrence: US)
  Receive Date: 20221220
  Receipt Date: 20230406
  Transmission Date: 20230722
  Serious: No
  Sender: FDA-Public Use
  Company Number: US-CARA THERAPEUTICS, INC.-2022-00103-US

PATIENT
  Age: 92 Year
  Sex: Female
  Weight: 61 kg

DRUGS (15)
  1. KORSUVA [Suspect]
     Active Substance: DIFELIKEFALIN ACETATE
     Indication: Pruritus
     Dosage: 0.6 MILLILITER, TIW
     Route: 042
     Dates: start: 20220923, end: 20220930
  2. ALLOPURINOL [Concomitant]
     Active Substance: ALLOPURINOL
     Indication: Gout
     Dosage: 100 MILLIGRAM, QD
  3. ASPIRIN [Concomitant]
     Active Substance: ASPIRIN
     Dosage: 81 MILLIGRAM, QD
  4. ATORVASTATIN [Concomitant]
     Active Substance: ATORVASTATIN
     Indication: Blood cholesterol
     Dosage: 40 MILLIGRAM, QHS
  5. BUMETANIDE [Concomitant]
     Active Substance: BUMETANIDE
     Indication: Diuretic therapy
     Dosage: 0.5 MILLIGRAM, QD
  6. CALCIUM ACETATE [Concomitant]
     Active Substance: CALCIUM ACETATE
     Indication: End stage renal disease
     Dosage: 667 MILLIGRAM, TID
  7. CALCIUM ACETATE [Concomitant]
     Active Substance: CALCIUM ACETATE
     Indication: Hyperphosphataemia
  8. DILTIAZEM [Concomitant]
     Active Substance: DILTIAZEM
     Indication: Cardiac disorder
     Dosage: 240 MILLIGRAM, QD
  9. DILTIAZEM [Concomitant]
     Active Substance: DILTIAZEM
     Indication: Blood pressure management
  10. ELIQUIS [Concomitant]
     Active Substance: APIXABAN
     Indication: Anticoagulant therapy
     Dosage: 2.5 MILLIGRAM, BID
  11. INSULIN NOS [Concomitant]
     Active Substance: INSULIN NOS
     Indication: Type 2 diabetes mellitus
     Dosage: SLIDING SCALE
  12. MIDODRINE [Concomitant]
     Active Substance: MIDODRINE
     Indication: Blood pressure management
     Dosage: 5 MILLIGRAM, TID
  13. VITAMINS [Concomitant]
     Active Substance: VITAMINS
     Indication: Dialysis
     Dosage: UNK, QD
  14. VITAMIN D3 [Concomitant]
     Active Substance: CHOLECALCIFEROL
     Dosage: 2000 IU INTERNATIONAL UNIT(S), QD
  15. TAMSULOSIN [Concomitant]
     Active Substance: TAMSULOSIN
     Indication: Appetite disorder
     Dosage: 0.4 MILLIGRAM, QD

REACTIONS (2)
  - Vomiting [Recovered/Resolved]
  - Nausea [Recovered/Resolved]

NARRATIVE: CASE EVENT DATE: 20220901
